FAERS Safety Report 8850078 (Version 7)
Quarter: 2014Q3

REPORT INFORMATION
  Report Type: Spontaneous
  Country: CA (occurrence: CA)
  Receive Date: 20121019
  Receipt Date: 20140707
  Transmission Date: 20150326
  Serious: Yes (Hospitalization)
  Sender: FDA-Public Use
  Company Number: CA-GLAXOSMITHKLINE-A0974654A

PATIENT
  Age: 53 Year
  Sex: Female
  Weight: 89 kg

DRUGS (5)
  1. BENLYSTA [Suspect]
     Active Substance: BELIMUMAB
     Indication: SYSTEMIC LUPUS ERYTHEMATOSUS
     Dosage: 860MG SEE DOSAGE TEXT
     Route: 042
     Dates: start: 20120326
  2. HYDROXYCHLOROQUINE [Concomitant]
     Active Substance: HYDROXYCHLOROQUINE
     Dosage: 400MG UNKNOWN
     Route: 065
  3. DIPHENHYDRAMINE [Concomitant]
     Active Substance: DIPHENHYDRAMINE
     Dosage: 50MG UNKNOWN
     Route: 065
  4. ACETAMINOPHEN. [Concomitant]
     Active Substance: ACETAMINOPHEN
     Dosage: 1000MG UNKNOWN
     Route: 065
  5. PREDNISONE. [Concomitant]
     Active Substance: PREDNISONE
     Dosage: 15MG UNKNOWN
     Route: 065

REACTIONS (14)
  - Nasopharyngitis [Unknown]
  - Knee arthroplasty [Unknown]
  - Malaise [Unknown]
  - Activities of daily living impaired [Recovered/Resolved]
  - Cough [Unknown]
  - Asthenia [Recovered/Resolved]
  - Pertussis [Recovered/Resolved]
  - Musculoskeletal disorder [Unknown]
  - Fatigue [Recovered/Resolved]
  - Arthralgia [Unknown]
  - Joint swelling [Unknown]
  - Drug ineffective [Unknown]
  - Arthropathy [Unknown]
  - Hypoaesthesia [Unknown]

NARRATIVE: CASE EVENT DATE: 20120410
